FAERS Safety Report 7041703-2 (Version None)
Quarter: 2010Q4

REPORT INFORMATION
  Report Type: 
  Country: None (occurrence: None)
  Receive Date: 20101013
  Receipt Date: 20100716
  Transmission Date: 20110411
  Serious: No
  Sender: FDA-Public Use
  Company Number: US-ASTRAZENECA-2010SE33555

PATIENT
  Age: 871 Month
  Sex: Male
  Weight: 123.4 kg

DRUGS (10)
  1. SYMBICORT [Suspect]
     Indication: CHRONIC OBSTRUCTIVE PULMONARY DISEASE
     Dosage: 160/4.5, TWO PUFFS
     Route: 055
     Dates: start: 20080101
  2. SYMBICORT [Suspect]
     Indication: ASTHMA
     Dosage: 160/4.5, TWO PUFFS
     Route: 055
     Dates: start: 20080101
  3. METOPROLOL [Concomitant]
  4. METOLAZONE [Concomitant]
  5. SPIRONOLACTONE [Concomitant]
  6. GLYBURIDE [Concomitant]
  7. WARFARIN SODIUM [Concomitant]
  8. ZOPENEX [Concomitant]
  9. TRAVATAN EYE DROPS [Concomitant]
     Route: 047
  10. PROVOSTATINE [Concomitant]

REACTIONS (1)
  - DYSPNOEA [None]
